FAERS Safety Report 6332133-7 (Version None)
Quarter: 2009Q3

REPORT INFORMATION
  Report Type: 
  Country: None (occurrence: None)
  Receive Date: 20090828
  Receipt Date: 20090820
  Transmission Date: 20100115
  Serious: Yes (Other)
  Sender: FDA-Public Use
  Company Number: US-ASTRAZENECA-2008UW27486

PATIENT
  Sex: Female
  Weight: 70.3 kg

DRUGS (6)
  1. SEROQUEL [Suspect]
     Indication: BIPOLAR I DISORDER
     Route: 048
     Dates: start: 20060101, end: 20071201
  2. SEROQUEL [Suspect]
     Indication: MENTAL DISORDER
     Route: 048
     Dates: start: 20060101, end: 20071201
  3. SEROQUEL [Suspect]
     Indication: DEPRESSION
     Route: 048
     Dates: start: 20060101, end: 20071201
  4. ZYPREXA [Concomitant]
  5. PROZAC [Concomitant]
  6. CELEXA [Concomitant]

REACTIONS (2)
  - ADVERSE DRUG REACTION [None]
  - DIABETES MELLITUS [None]
